FAERS Safety Report 16688052 (Version 1)
Quarter: 2019Q3

REPORT INFORMATION
  Report Type: Spontaneous
  Country: JP (occurrence: JP)
  Receive Date: 20190809
  Receipt Date: 20190809
  Transmission Date: 20191004
  Serious: Yes (Other)
  Sender: FDA-Public Use
  Company Number: JP-ASTRAZENECA-2019SF13817

PATIENT
  Sex: Male

DRUGS (1)
  1. IRESSA [Suspect]
     Active Substance: GEFITINIB
     Indication: LUNG NEOPLASM MALIGNANT
     Route: 048

REACTIONS (18)
  - Muscular weakness [Unknown]
  - Muscle spasms [Unknown]
  - Nocturia [Unknown]
  - Dehydration [Unknown]
  - Seizure [Unknown]
  - Skin laceration [Unknown]
  - Grip strength decreased [Unknown]
  - Lid margin discharge [Recovered/Resolved]
  - Eye discharge [Not Recovered/Not Resolved]
  - Gait disturbance [Unknown]
  - Thirst [Unknown]
  - Urinary incontinence [Unknown]
  - Metastases to pleura [Unknown]
  - Peripheral swelling [Unknown]
  - Pain in extremity [Unknown]
  - Paronychia [Unknown]
  - Hypoaesthesia [Unknown]
  - Urine output decreased [Unknown]

NARRATIVE: CASE EVENT DATE: 201908
